FAERS Safety Report 25517221 (Version 1)
Quarter: 2025Q3

REPORT INFORMATION
  Report Type: Spontaneous
  Country: CN (occurrence: CN)
  Receive Date: 20250704
  Receipt Date: 20250704
  Transmission Date: 20251020
  Serious: Yes (Other)
  Sender: BAXTER
  Company Number: None

PATIENT
  Age: 55 Year
  Sex: Female
  Weight: 50 kg

DRUGS (4)
  1. CYCLOPHOSPHAMIDE [Suspect]
     Active Substance: CYCLOPHOSPHAMIDE
     Indication: Invasive breast carcinoma
     Dosage: 828 MG, EVERY 3 WK (Q21D)
     Route: 041
     Dates: start: 20250401, end: 20250603
  2. DOXORUBICIN HYDROCHLORIDE [Suspect]
     Active Substance: DOXORUBICIN HYDROCHLORIDE
     Indication: Invasive breast carcinoma
     Dosage: 48 MG, EVERY 3 WK (Q21D)
     Route: 041
     Dates: start: 20250401, end: 20250603
  3. SODIUM CHLORIDE [Suspect]
     Active Substance: SODIUM CHLORIDE
     Indication: Medication dilution
     Dosage: 500 ML, EVERY 3 WK (Q21D WITH CYCLOPHOSPHAMIDE INJECTION)
     Route: 041
     Dates: start: 20250401, end: 20250603
  4. DEXTROSE [Suspect]
     Active Substance: DEXTROSE MONOHYDRATE
     Indication: Medication dilution
     Dosage: 250 ML, EVERY 3 WK (Q21D WITH DOXORUBICIN INJECTION)
     Route: 041
     Dates: start: 20250401, end: 20250603

REACTIONS (4)
  - Drug eruption [Recovering/Resolving]
  - Skin disorder [Recovering/Resolving]
  - Skin discolouration [Recovering/Resolving]
  - Skin exfoliation [Recovering/Resolving]

NARRATIVE: CASE EVENT DATE: 20250605
